FAERS Safety Report 5656229-8 (Version None)
Quarter: 2008Q1

REPORT INFORMATION
  Report Type: 
  Country: None (occurrence: None)
  Receive Date: 20080305
  Receipt Date: 20080220
  Transmission Date: 20080703
  Serious: Yes (Death, Other)
  Sender: FDA-Public Use
  Company Number: DSA_31498_2008

PATIENT
  Age: 69 Year
  Sex: Female

DRUGS (5)
  1. ORFIDAL (ORFIDAL - LORAZEPAM) 1 MG [Suspect]
     Indication: INSOMNIA
     Dosage: (1 MG QD ORAL)
     Route: 048
     Dates: start: 20071001, end: 20071231
  2. FRENADOL /01380101/ (FRENADOL - CHLORPHENAMINE MALEATE / DEXTROMETHORP [Suspect]
     Indication: INFLUENZA
     Dosage: (1 DF TID ORAL)
     Route: 048
     Dates: start: 20071226, end: 20071231
  3. NEURONTIN [Suspect]
     Indication: PAIN
     Dosage: (400 MG QD ORAL)
     Route: 048
     Dates: start: 20071001, end: 20071231
  4. ENALAPRIL MALEATE [Concomitant]
  5. PARACETAMOL [Concomitant]

REACTIONS (3)
  - BLOOD CHLORIDE DECREASED [None]
  - DISORIENTATION [None]
  - HYPONATRAEMIA [None]
